FAERS Safety Report 17550683 (Version 1)
Quarter: 2020Q1

REPORT INFORMATION
  Report Type: Spontaneous
  Country: US (occurrence: US)
  Receive Date: 20200309
  Receipt Date: 20200309
  Transmission Date: 20200409
  Serious: Yes (Hospitalization)
  Sender: FDA-Public Use
  Company Number: None

PATIENT
  Age: 67 Year
  Sex: Male

DRUGS (28)
  1. LEXAPRO [Concomitant]
     Active Substance: ESCITALOPRAM OXALATE
  2. AMLODIPINE [Concomitant]
     Active Substance: AMLODIPINE BESYLATE
  3. CARVEDILOL. [Concomitant]
     Active Substance: CARVEDILOL
  4. CLONIDINE. [Concomitant]
     Active Substance: CLONIDINE
  5. OSELTAMVIR [Concomitant]
     Active Substance: OSELTAMIVIR
  6. HYDROCO/APAP [Concomitant]
     Active Substance: ACETAMINOPHEN\HYDROCODONE
  7. HUMIRA [Suspect]
     Active Substance: ADALIMUMAB
     Indication: PSORIASIS
     Route: 058
     Dates: start: 20200123
  8. HYDROCHLOROTHIAZIDE. [Concomitant]
     Active Substance: HYDROCHLOROTHIAZIDE
  9. NIFEDIPINE. [Concomitant]
     Active Substance: NIFEDIPINE
  10. GABAPENTIN. [Concomitant]
     Active Substance: GABAPENTIN
  11. ESCITALOPRAM [Concomitant]
     Active Substance: ESCITALOPRAM OXALATE
  12. FINASTERIDE. [Concomitant]
     Active Substance: FINASTERIDE
  13. VIRTUSSIN [Concomitant]
  14. ATORVASTATIN [Concomitant]
     Active Substance: ATORVASTATIN
  15. ETODOLAC. [Concomitant]
     Active Substance: ETODOLAC
  16. AZITHROMYCIN ANHYDROUS. [Concomitant]
     Active Substance: AZITHROMYCIN ANHYDROUS
  17. LORATADINE. [Concomitant]
     Active Substance: LORATADINE
  18. ESCITALOPRAM [Concomitant]
     Active Substance: ESCITALOPRAM OXALATE
  19. TIZANIDINE. [Concomitant]
     Active Substance: TIZANIDINE
  20. IRBESARTAN. [Concomitant]
     Active Substance: IRBESARTAN
  21. TAMOXIFEN [Concomitant]
     Active Substance: TAMOXIFEN
  22. LYRICA [Concomitant]
     Active Substance: PREGABALIN
  23. LISINOPRIL. [Concomitant]
     Active Substance: LISINOPRIL
  24. CYCLOBENZAPRINE. [Concomitant]
     Active Substance: CYCLOBENZAPRINE
  25. CHLORHEX [Concomitant]
     Active Substance: CHLORHEXIDINE GLUCONATE
  26. ANASTRAZOLE [Concomitant]
     Active Substance: ANASTROZOLE
  27. PREDNISONE. [Concomitant]
     Active Substance: PREDNISONE
  28. PREGABALIN. [Concomitant]
     Active Substance: PREGABALIN

REACTIONS (1)
  - Influenza [None]

NARRATIVE: CASE EVENT DATE: 20200306
